FAERS Safety Report 9524470 (Version 1)
Quarter: 2013Q1

REPORT INFORMATION
  Report Type: Spontaneous
  Country: US (occurrence: None)
  Receive Date: 20130305
  Receipt Date: 20130305
  Transmission Date: 20140127
  Serious: Yes (Hospitalization)
  Sender: FDA-Public Use
  Company Number: 163-21880-12022444

PATIENT
  Age: 67 Year
  Sex: Female
  Weight: 129.73 kg

DRUGS (7)
  1. REVLIMID (LENALIDOMIDE) (10 MG CAPSULES) [Suspect]
     Indication: PLASMA CELL MYELOMA
     Route: 048
     Dates: start: 20110930
  2. POTASSIUM (POTASSIUM) [Concomitant]
  3. FUROSEMIDE (FUROSEMIDE) [Concomitant]
  4. RANITIDNE (RANITIDINE) [Concomitant]
  5. GEMFIBROZIL (GEMFIBROZIL) [Concomitant]
  6. VENLAFAXIN (VENLAFAXINE HYDROCHLORIDE) [Concomitant]
  7. VERAPAMIL (VERAPAMIL) [Concomitant]

REACTIONS (1)
  - Red blood cell count decreased [None]
